FAERS Safety Report 10783544 (Version 2)
Quarter: 2015Q3

REPORT INFORMATION
  Report Type: Report from Study
  Country: US (occurrence: US)
  Receive Date: 20150210
  Receipt Date: 20150730
  Transmission Date: 20151125
  Serious: Yes (Death, Other)
  Sender: FDA-Public Use
  Company Number: US-GILEAD-2015-0136145

PATIENT
  Age: 66 Year
  Sex: Female

DRUGS (2)
  1. AMBRISENTAN [Suspect]
     Active Substance: AMBRISENTAN
     Indication: PULMONARY HYPERTENSION
     Dosage: 10 MG, QD
     Route: 065
     Dates: start: 20131007, end: 20141204
  2. AMBRISENTAN [Suspect]
     Active Substance: AMBRISENTAN
     Indication: CONNECTIVE TISSUE DISORDER

REACTIONS (7)
  - Aortic valve incompetence [Fatal]
  - Pulmonary hypertension [Fatal]
  - Streptococcal bacteraemia [Fatal]
  - Cardiac failure congestive [Fatal]
  - Systemic lupus erythematosus [Fatal]
  - Meningitis bacterial [Fatal]
  - Scleroderma [Fatal]
